FAERS Safety Report 6022769-5 (Version None)
Quarter: 2008Q4

REPORT INFORMATION
  Report Type: 
  Country: None (occurrence: None)
  Receive Date: 20081224
  Receipt Date: 20081224
  Transmission Date: 20090506
  Serious: Yes (Other)
  Sender: FDA-Public Use
  Company Number: None

PATIENT
  Age: 47 Year
  Sex: Female
  Weight: 74.8435 kg

DRUGS (1)
  1. BUDEPRION XL EXTENDED-RELEASE 300 MG TEVA [Suspect]
     Indication: SEASONAL AFFECTIVE DISORDER
     Dosage: 1 TABLET -300 MG- DAILY PO
     Route: 048
     Dates: start: 20081122, end: 20081222

REACTIONS (9)
  - AFFECTIVE DISORDER [None]
  - ASTHENIA [None]
  - DEPRESSION [None]
  - DISTURBANCE IN ATTENTION [None]
  - DRUG INEFFECTIVE [None]
  - HEADACHE [None]
  - IRRITABILITY [None]
  - NAUSEA [None]
  - THERAPEUTIC RESPONSE UNEXPECTED WITH DRUG SUBSTITUTION [None]
